FAERS Safety Report 5564921-9 (Version None)
Quarter: 2007Q4

REPORT INFORMATION
  Report Type: 
  Country: None (occurrence: None)
  Receive Date: 20071218
  Receipt Date: 20071214
  Transmission Date: 20080405
  Serious: Yes (Other)
  Sender: FDA-Public Use
  Company Number: A0699050A

PATIENT
  Sex: Male

DRUGS (4)
  1. LAMICTAL [Suspect]
     Indication: DRUG USE FOR UNKNOWN INDICATION
     Route: 048
  2. CHINESE HERBS [Suspect]
     Indication: LYME DISEASE
     Route: 065
  3. RISPERDAL [Concomitant]
  4. LEXAPRO [Concomitant]

REACTIONS (2)
  - HALLUCINATION, VISUAL [None]
  - VISUAL DISTURBANCE [None]
